FAERS Safety Report 6998844-5 (Version None)
Quarter: 2010Q3

REPORT INFORMATION
  Report Type: 
  Country: None (occurrence: None)
  Receive Date: 20100920
  Receipt Date: 20100108
  Transmission Date: 20110219
  Serious: No
  Sender: FDA-Public Use
  Company Number: US-ASTRAZENECA-2010SE00976

PATIENT
  Age: 55 Year
  Sex: Male
  Weight: 94.3 kg

DRUGS (3)
  1. SEROQUEL [Suspect]
     Indication: SLEEP DISORDER
     Route: 048
     Dates: start: 20050101
  2. NARDIL [Concomitant]
     Indication: ANTIDEPRESSANT THERAPY
     Route: 048
  3. KLONOPIN [Concomitant]
     Indication: ANXIETY
     Route: 048

REACTIONS (4)
  - CATARACT [None]
  - VITREOUS FLOATERS [None]
  - VITREOUS LOSS [None]
  - WEIGHT DECREASED [None]
